FAERS Safety Report 22064836 (Version 2)
Quarter: 2023Q1

REPORT INFORMATION
  Report Type: Spontaneous
  Country: CA (occurrence: CA)
  Receive Date: 20230306
  Receipt Date: 20230331
  Transmission Date: 20230417
  Serious: Yes (Other)
  Sender: FDA-Public Use
  Company Number: CA-JNJFOC-20230310812

PATIENT
  Age: 19 Year
  Sex: Male
  Weight: 63 kg

DRUGS (10)
  1. REMICADE [Suspect]
     Active Substance: INFLIXIMAB
     Indication: Crohn^s disease
     Route: 041
  2. INFLIXIMAB [Suspect]
     Active Substance: INFLIXIMAB
     Indication: Crohn^s disease
     Route: 042
  3. INFLIXIMAB [Suspect]
     Active Substance: INFLIXIMAB
     Route: 042
  4. LAMOTRIGINE [Concomitant]
     Active Substance: LAMOTRIGINE
  5. PINAVERIUM BROMIDE [Concomitant]
     Active Substance: PINAVERIUM BROMIDE
  6. PREDNISONE [Concomitant]
     Active Substance: PREDNISONE
  7. QUETIAPINE [Concomitant]
     Active Substance: QUETIAPINE
  8. QUETIAPINE [Concomitant]
     Active Substance: QUETIAPINE
  9. TYLENOL [Concomitant]
     Active Substance: ACETAMINOPHEN
  10. TYLENOL WITH CODEINE NO. 2 [Concomitant]

REACTIONS (12)
  - Throat tightness [Recovered/Resolved]
  - Weight increased [Recovered/Resolved]
  - Chest discomfort [Recovered/Resolved]
  - Dyspnoea [Recovered/Resolved]
  - Vomiting [Recovered/Resolved]
  - Flushing [Recovered/Resolved]
  - Anaphylactic reaction [Recovered/Resolved]
  - Abdominal pain [Recovered/Resolved]
  - Dizziness [Recovered/Resolved]
  - Nausea [Recovered/Resolved]
  - Therapeutic response shortened [Recovered/Resolved]
  - Off label use [Recovered/Resolved]
